FAERS Safety Report 4945908-3 (Version None)
Quarter: 2006Q1

REPORT INFORMATION
  Report Type: 
  Country: None (occurrence: None)
  Receive Date: 20060117
  Receipt Date: 20050110
  Transmission Date: 20060701
  Serious: Yes (Life-Threatening, Hospitalization)
  Sender: FDA-Public Use
  Company Number: A03200500112

PATIENT
  Age: 81 Year
  Sex: Female
  Weight: 58.9676 kg

DRUGS (9)
  1. PLAVIX [Suspect]
     Indication: CEREBROVASCULAR ACCIDENT
     Dosage: 75 MG QD - ORAL
     Route: 048
     Dates: start: 20040804, end: 20040915
  2. VALSARTAN [Concomitant]
  3. FLUOXETINE HYDROCHLORIDE [Concomitant]
  4. NATEGLINIDE [Concomitant]
  5. ACETYLSALICYLIC ACID SRT [Concomitant]
  6. ESTROGENS CONJUGATED [Concomitant]
  7. MODAFINIL [Concomitant]
  8. GALANTAMINE HYDROBROMIDE [Concomitant]
  9. HYDRALAZINE [Concomitant]

REACTIONS (3)
  - FEBRILE NEUTROPENIA [None]
  - HAEMOGLOBIN DECREASED [None]
  - MALAISE [None]
